FAERS Safety Report 11075611 (Version 1)
Quarter: 2015Q2

REPORT INFORMATION
  Report Type: Report from Study
  Country: DE (occurrence: DE)
  Receive Date: 20150429
  Receipt Date: 20150429
  Transmission Date: 20150821
  Serious: Yes (Other)
  Sender: FDA-Public Use
  Company Number: DE-GILEAD-2015-0144306

PATIENT
  Age: 63 Year
  Sex: Male
  Weight: 102 kg

DRUGS (14)
  1. CYCLOSPORIN [Concomitant]
     Active Substance: CYCLOSPORINE
  2. CELLCEPT [Concomitant]
     Active Substance: MYCOPHENOLATE MOFETIL\MYCOPHENOLATE MOFETIL HYDROCHLORIDE
  3. DICLOFENAC [Concomitant]
     Active Substance: DICLOFENAC
  4. RIBAVIRIN. [Suspect]
     Active Substance: RIBAVIRIN
     Indication: CHRONIC HEPATITIS C
     Dosage: 1 DF, QD
     Route: 048
     Dates: start: 20150217
  5. LANTUS [Concomitant]
     Active Substance: INSULIN GLARGINE
  6. LACTULOSE. [Concomitant]
     Active Substance: LACTULOSE
  7. MARCUMAR [Concomitant]
     Active Substance: PHENPROCOUMON
  8. TORASEMID [Concomitant]
     Active Substance: TORSEMIDE
  9. RAMIPRIL. [Concomitant]
     Active Substance: RAMIPRIL
  10. FORTECORTIN                        /00016001/ [Concomitant]
     Active Substance: DEXAMETHASONE
  11. CORIFEO [Concomitant]
  12. BISOPROLOL RATIOPHARM [Concomitant]
     Active Substance: BISOPROLOL
  13. LEDIPASVIR/SOFOSBUVIR [Suspect]
     Active Substance: LEDIPASVIR\SOFOSBUVIR
     Indication: CHRONIC HEPATITIS C
     Dosage: 90 MG, QD
     Route: 048
     Dates: start: 20150217
  14. METFORMIN [Concomitant]
     Active Substance: METFORMIN HYDROCHLORIDE

REACTIONS (1)
  - Diabetes mellitus [Not Recovered/Not Resolved]

NARRATIVE: CASE EVENT DATE: 20150313
